FAERS Safety Report 7787620-1 (Version None)
Quarter: 2011Q3

REPORT INFORMATION
  Report Type: 
  Country: None (occurrence: None)
  Receive Date: 20110929
  Receipt Date: 20110923
  Transmission Date: 20111222
  Serious: Yes (Hospitalization)
  Sender: FDA-Public Use
  Company Number: US-GILEAD-2011-0044400

PATIENT

DRUGS (4)
  1. VENTAVIS [Concomitant]
  2. TRACLEER [Concomitant]
  3. LETAIRIS [Suspect]
     Indication: PRODUCT USED FOR UNKNOWN INDICATION
     Dosage: 10 MG, UNK
     Route: 048
     Dates: start: 20071113
  4. REVATIO [Concomitant]

REACTIONS (1)
  - NERVE COMPRESSION [None]
